FAERS Safety Report 9048323 (Version 1)
Quarter: 2013Q1

REPORT INFORMATION
  Report Type: Spontaneous
  Country: US (occurrence: None)
  Receive Date: 20130130
  Receipt Date: 20130130
  Transmission Date: 20140127
  Serious: Yes (Hospitalization)
  Sender: FDA-Public Use
  Company Number: None

PATIENT
  Sex: Female
  Weight: 69 kg

DRUGS (3)
  1. DACARBAZINE [Suspect]
  2. DOXORUBICIN HYDROCHLORIDE [Suspect]
  3. VINBLASTINE SULFATE [Suspect]

REACTIONS (5)
  - Abdominal pain [None]
  - Neutropenia [None]
  - Abdominal distension [None]
  - Intestinal ischaemia [None]
  - Gastrointestinal necrosis [None]
